FAERS Safety Report 19036799 (Version 1)
Quarter: 2021Q1

REPORT INFORMATION
  Report Type: Spontaneous
  Country: US (occurrence: US)
  Receive Date: 20210321
  Receipt Date: 20210321
  Transmission Date: 20210420
  Serious: Yes (Disabling)
  Sender: FDA-Public Use
  Company Number: None

PATIENT
  Age: 31 Year
  Sex: Female
  Weight: 58.5 kg

DRUGS (3)
  1. EMGALITY [Suspect]
     Active Substance: GALCANEZUMAB-GNLM
     Indication: MIGRAINE
     Dosage: ?          QUANTITY:2 INJECTION(S);OTHER FREQUENCY:MONTHLY;?
     Route: 030
     Dates: start: 20210222
  2. LMITREX [Concomitant]
  3. VALIUM [Concomitant]
     Active Substance: DIAZEPAM

REACTIONS (11)
  - Tinnitus [None]
  - Weight increased [None]
  - Depression [None]
  - Panic attack [None]
  - Migraine [None]
  - Night sweats [None]
  - Oedema peripheral [None]
  - Muscle tightness [None]
  - Nausea [None]
  - Anxiety [None]
  - Constipation [None]

NARRATIVE: CASE EVENT DATE: 20210225
